FAERS Safety Report 23922005 (Version 1)
Quarter: 2024Q2

REPORT INFORMATION
  Report Type: Spontaneous
  Country: US (occurrence: None)
  Receive Date: 20240531
  Receipt Date: 20240531
  Transmission Date: 20240716
  Serious: No
  Sender: FDA-Public Use
  Company Number: 2024A119537

PATIENT
  Age: 77 Year
  Sex: Female
  Weight: 49 kg

DRUGS (3)
  1. PRILOSEC [Suspect]
     Active Substance: OMEPRAZOLE MAGNESIUM
     Indication: Erosive oesophagitis
     Dosage: 20 MG, 1X/DAY IN THE MORNING
     Route: 048
     Dates: start: 20240426
  2. VOQUEZNA [Suspect]
     Active Substance: VONOPRAZAN FUMARATE
     Indication: Erosive oesophagitis
     Dosage: 20 MG, 1X/DAY, ORAL USE
     Route: 048
     Dates: start: 20240411, end: 20240424
  3. PEPCID [Suspect]
     Active Substance: FAMOTIDINE
     Indication: Erosive oesophagitis
     Dosage: 40 MG, 1X/DAY IN THE AFTERNOON
     Dates: start: 20240426

REACTIONS (5)
  - Discomfort [Unknown]
  - Therapeutic product effect decreased [Unknown]
  - Dyspepsia [Unknown]
  - Abdominal distension [Unknown]
  - Off label use [Unknown]

NARRATIVE: CASE EVENT DATE: 20240425
